FAERS Safety Report 13384534 (Version 1)
Quarter: 2017Q1

REPORT INFORMATION
  Report Type: Spontaneous
  Country: US (occurrence: US)
  Receive Date: 20170329
  Receipt Date: 20170329
  Transmission Date: 20170429
  Serious: No
  Sender: FDA-Public Use
  Company Number: US-ALLERGAN-1667017US

PATIENT
  Sex: Male
  Weight: 124.72 kg

DRUGS (2)
  1. NORCO [Suspect]
     Active Substance: ACETAMINOPHEN\HYDROCODONE BITARTRATE
     Indication: PAIN
     Dosage: 2 DF, Q6HR
     Route: 048
     Dates: start: 20160820, end: 20160901
  2. ARMOUR THYROID [Concomitant]
     Active Substance: THYROID, PORCINE
     Indication: HYPOTHYROIDISM
     Dosage: UNK

REACTIONS (1)
  - Drug ineffective [Unknown]
